FAERS Safety Report 8341339 (Version 3)
Quarter: 2012Q4

REPORT INFORMATION
  Report Type: 
  Country: US (occurrence: US)
  Receive Date: 20120118
  Receipt Date: 20121119
  Transmission Date: 20130627
  Serious: No
  Sender: FDA-Public Use
  Company Number: US-BAYER-2012-005055

PATIENT
  Age: 27 Year
  Sex: Female
  Weight: 68.93 kg

DRUGS (1)
  1. MIRENA [Suspect]
     Indication: CONTRACEPTION
     Dosage: 20 mcg/24hr, CONT
     Route: 015
     Dates: start: 20100727

REACTIONS (4)
  - Pregnancy with contraceptive device [Not Recovered/Not Resolved]
  - Device expulsion [Not Recovered/Not Resolved]
  - Device issue [Not Recovered/Not Resolved]
  - Drug ineffective [None]
